FAERS Safety Report 4421609-5 (Version None)
Quarter: 2004Q3

REPORT INFORMATION
  Report Type: 
  Country: None (occurrence: None)
  Receive Date: 20040804
  Receipt Date: 20040721
  Transmission Date: 20050211
  Serious: Yes (Hospitalization)
  Sender: FDA-Public Use
  Company Number: 24676

PATIENT
  Age: 71 Year
  Sex: Male

DRUGS (12)
  1. FLECAINIDE ACETATE [Suspect]
     Dosage: 100 MG (50 MG,2  IN 1 DAY (S))
     Route: 048
     Dates: end: 20040627
  2. CYTARABINE [Suspect]
     Dosage: 180 MG
     Route: 042
     Dates: start: 20040617, end: 20040623
  3. HYDREA [Suspect]
     Dosage: 2000 MG
     Route: 048
     Dates: start: 20040616, end: 20040617
  4. ALLOPURINOL [Suspect]
     Dosage: 600 MG (300 MG, 2 IN DAY (S))
     Route: 048
     Dates: start: 20040616, end: 20040617
  5. VALACYCLOVIR HCL [Suspect]
     Dosage: 500 MG (500 MG, 1 IN 1 DAY(S))
     Route: 048
     Dates: start: 20040616, end: 20040624
  6. IDARUBICIN HCL [Suspect]
     Dosage: 14 MG ( I IN 1 DAY (S))
     Route: 042
     Dates: start: 20040617, end: 20040621
  7. BELUSTINE (LOMUSTINE) [Concomitant]
  8. REQUIP [Concomitant]
  9. LASILIX (FRUSEMIDE) [Concomitant]
  10. HEPARIN [Concomitant]
  11. LEXOMIL (BROMAZEPAM) [Concomitant]
  12. FASTURTEC (RASBURICASE) [Concomitant]

REACTIONS (7)
  - ANAEMIA [None]
  - BLOOD CREATININE INCREASED [None]
  - BLOOD CULTURE POSITIVE [None]
  - HEPATITIS CHOLESTATIC [None]
  - LEUKOPENIA [None]
  - STAPHYLOCOCCAL INFECTION [None]
  - THROMBOCYTOPENIA [None]
